FAERS Safety Report 19886910 (Version 3)
Quarter: 2021Q4

REPORT INFORMATION
  Report Type: Spontaneous
  Country: DE (occurrence: DE)
  Receive Date: 20210927
  Receipt Date: 20211021
  Transmission Date: 20220303
  Serious: Yes (Hospitalization)
  Sender: FDA-Public Use
  Company Number: DE-002147023-NVSC2021DE029477

PATIENT
  Age: 61 Year
  Sex: Male
  Weight: 113.9 kg

DRUGS (28)
  1. VALSARTAN [Suspect]
     Active Substance: VALSARTAN
     Indication: Hypertension
     Dosage: 1 DOSAGE FORM, QD (1 DF, QD (IN THE MORNING))
     Route: 065
  2. VALSARTAN [Suspect]
     Active Substance: VALSARTAN
     Dosage: 1 DOSAGE FORM, QD, 1 DF (320 MG), QD
     Route: 065
     Dates: start: 20170926, end: 201710
  3. VALSARTAN [Suspect]
     Active Substance: VALSARTAN
     Dosage: 1 DOSAGE FORM, QD, 1 DF(160 MG) , QD
     Route: 065
     Dates: start: 20170920
  4. VALSARTAN [Suspect]
     Active Substance: VALSARTAN
     Dosage: 0.5 DOSAGE FORM, 0.5 DF (160 MG), QD
     Route: 065
     Dates: start: 20170920, end: 20170926
  5. VALSARTAN [Suspect]
     Active Substance: VALSARTAN
     Indication: Hypertension
     Dosage: 1 DOSAGE FORM, QD (1 DF, QD)
     Route: 065
     Dates: start: 20171019, end: 2018
  6. METFORMIN [Suspect]
     Active Substance: METFORMIN HYDROCHLORIDE
     Indication: Product used for unknown indication
     Dosage: 1000 MILLIGRAM, QD ((1000 MG) (IN THE MORNING AND IN THE EVENING))
     Route: 065
     Dates: start: 2017
  7. METFORMIN [Suspect]
     Active Substance: METFORMIN HYDROCHLORIDE
     Dosage: 750 MILLIGRAM, QD (250 MG, TID (STARTED BETWEEN 19 DEC 2018 AND 09 JAN 2019))
     Route: 065
  8. METFORMIN [Suspect]
     Active Substance: METFORMIN HYDROCHLORIDE
     Dosage: 1 MILLIGRAM, QD, 0.5 MG, BID (HALF OF A TABLET IN THE MORNING, HALF OF A TABLET IN THE EVENING
     Route: 048
     Dates: start: 2017
  9. VALSARTAN [Suspect]
     Active Substance: VALSARTAN
     Indication: Hypertension
     Dosage: 1 DOSAGE FORM, QD
     Dates: start: 20171019, end: 2018
  10. AMLODIPINE [Concomitant]
     Active Substance: AMLODIPINE BESYLATE
     Indication: Product used for unknown indication
     Dosage: 5 MILLIGRAM, QD (5 MG, QD (IN THE MORNING))
     Route: 065
  11. MAGNESIUM [Concomitant]
     Active Substance: MAGNESIUM
     Indication: Product used for unknown indication
     Dosage: 300 MILLIGRAM, QD (300 MG, QD (IN THE MORNING))
     Route: 065
  12. MAGNESIUM [Concomitant]
     Active Substance: MAGNESIUM
     Dosage: 1 DOSAGE FORM, QD, 1 DF, QD
     Route: 065
  13. TRIMIPRAMINE MALEATE [Concomitant]
     Active Substance: TRIMIPRAMINE MALEATE
     Indication: Product used for unknown indication
     Dosage: UNK
     Route: 065
     Dates: start: 2017
  14. ATORVASTATIN [Concomitant]
     Active Substance: ATORVASTATIN
     Indication: Product used for unknown indication
     Dosage: 10 DOSAGE FORM, QD (10 DF, QD  (IN THE EVENING)
     Route: 065
     Dates: start: 2017
  15. ATORVASTATIN [Concomitant]
     Active Substance: ATORVASTATIN
     Dosage: 0.5 DOSAGE FORM, QD, 0.5 DF, QD (20 MG)
     Route: 065
     Dates: start: 2017
  16. ATORVASTATIN [Concomitant]
     Active Substance: ATORVASTATIN
     Dosage: 1 DOSAGE FORM, QD
  17. BISOPROLOL [Concomitant]
     Active Substance: BISOPROLOL
     Indication: Product used for unknown indication
     Dosage: 5 MILLIGRAM, QD (5 MG, QD (IN THE MORNING))
     Route: 065
     Dates: start: 2017
  18. VENLAFAXINE [Concomitant]
     Active Substance: VENLAFAXINE HYDROCHLORIDE
     Indication: Product used for unknown indication
     Dosage: 225 MILLIGRAM, QD (225 MG, QD (IN THE MORNING) (STARTED BETWEEN 19 DEC 2018 AND 09 JAN 2019))
     Route: 065
  19. VENLAFAXINE [Concomitant]
     Active Substance: VENLAFAXINE HYDROCHLORIDE
     Dosage: 150 MILLIGRAM, QD (150 MG, QD (IN THE MORNING))
     Route: 065
  20. CANDESARTAN [Concomitant]
     Active Substance: CANDESARTAN
     Indication: Product used for unknown indication
     Dosage: 0.5 DOSAGE FORM, QD, 0.5 DF, QD (16 MG)
     Dates: start: 201709
  21. CANDESARTAN [Concomitant]
     Active Substance: CANDESARTAN
     Dosage: 1 DOSAGE FORM, QD, 1 DF, QD
     Dates: start: 201709
  22. BISOPROLOL FUMARATE [Concomitant]
     Active Substance: BISOPROLOL FUMARATE
     Indication: Product used for unknown indication
     Dosage: 1 DOSAGE FORM, QD, 1 DF, QD
  23. BISOPROLOL FUMARATE [Concomitant]
     Active Substance: BISOPROLOL FUMARATE
     Indication: Product used for unknown indication
     Dosage: 0.5 DOSAGE FORM, QD, 0.5 UNK
     Route: 065
  24. BISOPROLOL FUMARATE [Concomitant]
     Active Substance: BISOPROLOL FUMARATE
     Dosage: 1 DOSAGE FORM, QD, 1 DF, QD
     Route: 065
  25. HYDROCHLOROTHIAZIDE [Concomitant]
     Active Substance: HYDROCHLOROTHIAZIDE
     Indication: Product used for unknown indication
     Dosage: 1 DOSAGE FORM, QD, 1 DF, QD
     Route: 065
     Dates: start: 20171009, end: 201710
  26. IBUPROFEN [Concomitant]
     Active Substance: IBUPROFEN
     Indication: Product used for unknown indication
     Dosage: 1 DOSAGE FORM, PRN
  27. VOLTAREN [Concomitant]
     Active Substance: DICLOFENAC SODIUM
     Indication: Product used for unknown indication
     Dosage: UNK
     Route: 065
     Dates: start: 20171009
  28. IBUPROFEN [Concomitant]
     Active Substance: IBUPROFEN
     Indication: Product used for unknown indication
     Dosage: 1 DOSAGE FORM, PRN

REACTIONS (30)
  - Depressed mood [Unknown]
  - Merycism [Unknown]
  - Disturbance in attention [Unknown]
  - Social avoidant behaviour [Unknown]
  - Sleep disorder [Unknown]
  - Feeling abnormal [Unknown]
  - Apathy [Unknown]
  - Nervousness [Unknown]
  - Depression [Recovering/Resolving]
  - Fatigue [Unknown]
  - Mental disorder [Unknown]
  - Emotional distress [Unknown]
  - Somatic symptom disorder [Unknown]
  - Blood pressure abnormal [Unknown]
  - Movement disorder [Unknown]
  - Pain [Unknown]
  - Product contamination [Unknown]
  - Obesity [Unknown]
  - Micturition urgency [Unknown]
  - Fear of disease [Unknown]
  - Abdominal tenderness [Unknown]
  - Snoring [Unknown]
  - Spinal osteoarthritis [Unknown]
  - Weight decreased [Unknown]
  - Hyperhidrosis [Unknown]
  - Osteoarthritis [Unknown]
  - Arthralgia [Unknown]
  - Diarrhoea [Unknown]
  - Infection [Unknown]
  - Drug intolerance [Unknown]

NARRATIVE: CASE EVENT DATE: 20170101
